FAERS Safety Report 12637026 (Version 2)
Quarter: 2016Q3

REPORT INFORMATION
  Report Type: Spontaneous
  Country: HU (occurrence: HU)
  Receive Date: 20160809
  Receipt Date: 20160906
  Transmission Date: 20161109
  Serious: Yes (Death, Other)
  Sender: FDA-Public Use
  Company Number: HU-BAYER-2016-146632

PATIENT
  Age: 66 Year
  Sex: Male

DRUGS (1)
  1. DACARBAZINE. [Suspect]
     Active Substance: DACARBAZINE
     Dosage: UNK

REACTIONS (2)
  - Pneumonia [Fatal]
  - Hodgkin^s disease [None]
